FAERS Safety Report 7595872-6 (Version None)
Quarter: 2011Q3

REPORT INFORMATION
  Report Type: 
  Country: None (occurrence: None)
  Receive Date: 20110707
  Receipt Date: 20110627
  Transmission Date: 20111222
  Serious: Yes (Hospitalization)
  Sender: FDA-Public Use
  Company Number: JP-UCBSA-036368

PATIENT
  Sex: Female

DRUGS (4)
  1. XYZAL [Suspect]
     Indication: RHINITIS
     Route: 048
  2. CLARITHROMYCIN [Concomitant]
     Dosage: FORM : POR, FREQ: 1 TIME EVERY 1 DAY
     Route: 048
  3. SOLON [Concomitant]
     Dosage: FORM : POR, FREQ: 1 TIME EVERY 1 DAY
     Route: 048
  4. PL [Concomitant]
     Dosage: FREQ: 1 TIME EVERY 1 DAY
     Route: 048

REACTIONS (1)
  - BLOOD PRESSURE INCREASED [None]
